FAERS Safety Report 8501518-2 (Version None)
Quarter: 2012Q3

REPORT INFORMATION
  Report Type: 
  Country: None (occurrence: None)
  Receive Date: 20120710
  Receipt Date: 20120629
  Transmission Date: 20120928
  Serious: Yes (Other)
  Sender: FDA-Public Use
  Company Number: BR-ELI_LILLY_AND_COMPANY-BR201207000132

PATIENT
  Sex: Female

DRUGS (2)
  1. BYETTA [Suspect]
     Dosage: 5 UG, UNKNOWN
     Route: 065
     Dates: start: 20111203
  2. BYETTA [Suspect]
     Indication: OBESITY
     Dosage: 5 UG, UNKNOWN
     Route: 065
     Dates: end: 20111124

REACTIONS (10)
  - OFF LABEL USE [None]
  - INTENTIONAL DRUG MISUSE [None]
  - ERYTHEMA [None]
  - LARYNGEAL OEDEMA [None]
  - OEDEMA PERIPHERAL [None]
  - HYPOAESTHESIA [None]
  - HYPOAESTHESIA ORAL [None]
  - RASH ERYTHEMATOUS [None]
  - FEELING ABNORMAL [None]
  - INJECTION SITE ERYTHEMA [None]
